FAERS Safety Report 19734472 (Version 2)
Quarter: 2021Q3

REPORT INFORMATION
  Report Type: Spontaneous
  Country: US (occurrence: US)
  Receive Date: 20210823
  Receipt Date: 20210914
  Transmission Date: 20211014
  Serious: No
  Sender: FDA-Public Use
  Company Number: US-ASTRAZENECA-2021A646587

PATIENT
  Age: 57 Year
  Sex: Male
  Weight: 99.8 kg

DRUGS (3)
  1. BYETTA [Suspect]
     Active Substance: EXENATIDE
     Indication: TYPE 2 DIABETES MELLITUS
     Route: 065
     Dates: start: 2009, end: 2015
  2. METFORMIN [Concomitant]
     Active Substance: METFORMIN HYDROCHLORIDE
  3. BYDUREON BCISE [Suspect]
     Active Substance: EXENATIDE
     Indication: TYPE 2 DIABETES MELLITUS
     Route: 058
     Dates: start: 2019

REACTIONS (5)
  - Nausea [Unknown]
  - Device leakage [Unknown]
  - Injury associated with device [Unknown]
  - Glycosylated haemoglobin increased [Unknown]
  - Device use issue [Unknown]

NARRATIVE: CASE EVENT DATE: 2015
